FAERS Safety Report 10991781 (Version 1)
Quarter: 2015Q2

REPORT INFORMATION
  Report Type: Spontaneous
  Country: FR (occurrence: FR)
  Receive Date: 20150406
  Receipt Date: 20150406
  Transmission Date: 20150821
  Serious: Yes (Death)
  Sender: FDA-Public Use
  Company Number: FR-PFIZER INC-2015112173

PATIENT
  Age: 82 Year
  Sex: Male

DRUGS (2)
  1. BOSULIF [Suspect]
     Active Substance: BOSUTINIB MONOHYDRATE
     Dosage: PROGRESSIVELY REINTRODUCED AT AN UNSPECIFIED DOSE
  2. BOSULIF [Suspect]
     Active Substance: BOSUTINIB MONOHYDRATE
     Indication: CHRONIC MYELOID LEUKAEMIA
     Dosage: 500 MG, UNK

REACTIONS (5)
  - Chronic myeloid leukaemia [Unknown]
  - Diarrhoea [Unknown]
  - Disease progression [Unknown]
  - Death [Fatal]
  - Lung disorder [Unknown]
